FAERS Safety Report 9506465 (Version 1)
Quarter: 2013Q3

REPORT INFORMATION
  Report Type: Report from Study
  Country: MX (occurrence: MX)
  Receive Date: 20130906
  Receipt Date: 20130906
  Transmission Date: 20140515
  Serious: Yes (Other)
  Sender: FDA-Public Use
  Company Number: PHHY2013MX098186

PATIENT
  Age: 62 Year
  Sex: Male

DRUGS (1)
  1. EXFORGE [Suspect]
     Indication: HYPERTENSION
     Dosage: 0.5 DF (160/10 MG), DAILY
     Route: 048
     Dates: start: 2012

REACTIONS (6)
  - Hodgkin^s disease [Not Recovered/Not Resolved]
  - Micturition disorder [Recovering/Resolving]
  - Vomiting [Recovering/Resolving]
  - Pain [Recovering/Resolving]
  - Malaise [Recovering/Resolving]
  - Wrong technique in drug usage process [Not Recovered/Not Resolved]
